FAERS Safety Report 15355580 (Version 1)
Quarter: 2018Q3

REPORT INFORMATION
  Report Type: Spontaneous
  Country: US (occurrence: US)
  Receive Date: 20180830
  Receipt Date: 20180830
  Transmission Date: 20181010
  Serious: No
  Sender: FDA-Public Use
  Company Number: None

PATIENT
  Age: 13 Year
  Sex: Male

DRUGS (6)
  1. MEPHYTON [Concomitant]
     Active Substance: PHYTONADIONE
  2. URSODIOL. [Concomitant]
     Active Substance: URSODIOL
  3. FLONASE [Concomitant]
     Active Substance: FLUTICASONE PROPIONATE
  4. PULMOZYME [Suspect]
     Active Substance: DORNASE ALFA
     Dosage: ?          OTHER FREQUENCY:6 X;?
     Route: 048
     Dates: start: 20040416
  5. OMPRAZOLE [Concomitant]
     Active Substance: OMEPRAZOLE
  6. PERTZYE [Suspect]
     Active Substance: PANCRELIPASE AMYLASE\PANCRELIPASE LIPASE\PANCRELIPASE PROTEASE
     Indication: CYSTIC FIBROSIS
     Route: 048
     Dates: start: 20180725

REACTIONS (1)
  - Constipation [None]

NARRATIVE: CASE EVENT DATE: 201808
